FAERS Safety Report 9161696 (Version 1)
Quarter: 2013Q1

REPORT INFORMATION
  Report Type: Spontaneous
  Country: US (occurrence: US)
  Receive Date: 20130314
  Receipt Date: 20130314
  Transmission Date: 20140127
  Serious: No
  Sender: FDA-Public Use
  Company Number: US-009507513-1303USA005937

PATIENT
  Sex: Male

DRUGS (2)
  1. ISENTRESS [Suspect]
     Indication: HIV TEST POSITIVE
     Dosage: 400 MG, BID
     Route: 048
     Dates: start: 20121127
  2. VICODIN HP [Interacting]
     Dosage: UNK
     Dates: start: 2010

REACTIONS (2)
  - Drug screen negative [Unknown]
  - Drug interaction [Unknown]
